FAERS Safety Report 9454100 (Version 2)
Quarter: 2013Q3

REPORT INFORMATION
  Report Type: Spontaneous
  Country: US (occurrence: US)
  Receive Date: 20130812
  Receipt Date: 20130828
  Transmission Date: 20140515
  Serious: No
  Sender: FDA-Public Use
  Company Number: US-BAYER-2013-097257

PATIENT
  Age: 64 Year
  Sex: Female

DRUGS (1)
  1. ALEVE CAPLET [Suspect]
     Dosage: 4 DF, OM
     Route: 048
     Dates: start: 2007

REACTIONS (2)
  - Extra dose administered [None]
  - Incorrect drug administration duration [None]
